FAERS Safety Report 8824750 (Version 1)
Quarter: 2012Q4

REPORT INFORMATION
  Report Type: Report from Study
  Country: JP (occurrence: JP)
  Receive Date: 20121004
  Receipt Date: 20121004
  Transmission Date: 20130627
  Serious: Yes (Hospitalization)
  Sender: FDA-Public Use
  Company Number: JP-SANOFI-AVENTIS-2012SA072601

PATIENT
  Age: 54 Year
  Sex: Male
  Weight: 70 kg

DRUGS (13)
  1. CLOPIDOGREL BISULFATE [Suspect]
     Indication: ST SEGMENT ELEVATION MYOCARDIAL INFARCTION
     Route: 065
     Dates: start: 20110311, end: 20110311
  2. CLOPIDOGREL BISULFATE [Suspect]
     Indication: ST SEGMENT ELEVATION MYOCARDIAL INFARCTION
     Route: 065
     Dates: start: 20110312, end: 20120208
  3. BAYASPIRIN [Concomitant]
     Indication: ST SEGMENT ELEVATION MYOCARDIAL INFARCTION
     Dates: start: 20110311
  4. LIPITOR /UNK/ [Concomitant]
     Dates: start: 20110311
  5. BLOPRESS [Concomitant]
     Dates: start: 20110311
  6. ARTIST [Concomitant]
     Dates: start: 20110311, end: 20110314
  7. ARTIST [Concomitant]
     Dates: start: 20110318
  8. SIGMART [Concomitant]
     Indication: ST SEGMENT ELEVATION MYOCARDIAL INFARCTION
     Dates: start: 20110312, end: 20110322
  9. ACETAMINOPHEN [Concomitant]
     Dates: start: 20110313, end: 20110320
  10. HEPARIN SODIUM [Concomitant]
     Indication: ST SEGMENT ELEVATION MYOCARDIAL INFARCTION
     Dates: start: 20110311, end: 20110312
  11. NITOROL [Concomitant]
     Indication: ST SEGMENT ELEVATION MYOCARDIAL INFARCTION
     Dates: start: 20110311, end: 20110311
  12. DILTIAZEM HYDROCHLORIDE [Concomitant]
     Dates: start: 20110514, end: 20120306
  13. NICORANDIL [Concomitant]
     Indication: ST SEGMENT ELEVATION MYOCARDIAL INFARCTION
     Dates: start: 20110311, end: 20110311

REACTIONS (1)
  - Atrioventricular block complete [Recovered/Resolved]
